FAERS Safety Report 14258191 (Version 2)
Quarter: 2018Q1

REPORT INFORMATION
  Report Type: Report from Study
  Country: CN (occurrence: CN)
  Receive Date: 20171207
  Receipt Date: 20180324
  Transmission Date: 20180508
  Serious: Yes (Other)
  Sender: FDA-Public Use
  Company Number: CN-ROCHE-1873834

PATIENT
  Age: 65 Year
  Sex: Male
  Weight: 70 kg

DRUGS (1)
  1. AVASTIN [Suspect]
     Active Substance: BEVACIZUMAB
     Indication: NON-SMALL CELL LUNG CANCER
     Route: 041
     Dates: start: 20160922

REACTIONS (6)
  - Blood glucose increased [Unknown]
  - Nasopharyngitis [Unknown]
  - Renal impairment [Unknown]
  - Cardiac disorder [Unknown]
  - Blood pressure increased [Unknown]
  - Oedema [Unknown]

NARRATIVE: CASE EVENT DATE: 20171113
